FAERS Safety Report 6768040-5 (Version None)
Quarter: 2010Q2

REPORT INFORMATION
  Report Type: 
  Country: None (occurrence: None)
  Receive Date: 20100614
  Receipt Date: 20100604
  Transmission Date: 20101027
  Serious: No
  Sender: FDA-Public Use
  Company Number: B0658019A

PATIENT
  Sex: Male

DRUGS (7)
  1. SERETIDE [Suspect]
     Indication: INTERSTITIAL LUNG DISEASE
     Dosage: 200MCG PER DAY
     Route: 055
     Dates: start: 20100527, end: 20100528
  2. MAINTATE [Concomitant]
     Indication: HYPERTENSION
     Dosage: 2.5MG PER DAY
     Route: 048
  3. CONIEL [Concomitant]
     Indication: HYPERTENSION
     Dosage: 4MG PER DAY
     Route: 048
  4. TAKEPRON [Concomitant]
     Indication: GASTRIC ULCER
     Dosage: 15MG PER DAY
     Route: 048
  5. PLETAL [Concomitant]
     Dosage: 200MG PER DAY
     Route: 048
  6. HUSCODE [Concomitant]
     Dosage: 6IUAX PER DAY
     Route: 048
  7. BAYASPIRIN [Concomitant]
     Dosage: 100MG PER DAY
     Route: 048

REACTIONS (1)
  - COUGH [None]
